FAERS Safety Report 9836076 (Version 1)
Quarter: 2014Q1

REPORT INFORMATION
  Report Type: Report from Study
  Country: MX (occurrence: MX)
  Receive Date: 20140122
  Receipt Date: 20140122
  Transmission Date: 20141002
  Serious: Yes (Other)
  Sender: FDA-Public Use
  Company Number: MX-ROCHE-1336121

PATIENT
  Age: 80 Year
  Sex: Male

DRUGS (3)
  1. RANIBIZUMAB [Suspect]
     Indication: RETINOPATHY
     Route: 050
     Dates: start: 201307
  2. RANIBIZUMAB [Suspect]
     Route: 050
     Dates: start: 201309
  3. RANIBIZUMAB [Suspect]
     Route: 050
     Dates: start: 201311

REACTIONS (5)
  - Gait disturbance [Unknown]
  - Joint injury [Not Recovered/Not Resolved]
  - Fall [Unknown]
  - Speech disorder [Not Recovered/Not Resolved]
  - Off label use [Unknown]
